FAERS Safety Report 17196008 (Version 1)
Quarter: 2019Q4

REPORT INFORMATION
  Report Type: Spontaneous
  Country: CH (occurrence: CH)
  Receive Date: 20191224
  Receipt Date: 20191224
  Transmission Date: 20200122
  Serious: Yes (Hospitalization)
  Sender: FDA-Public Use
  Company Number: NVSC2019CH075793

PATIENT
  Age: 77 Year
  Sex: Male

DRUGS (11)
  1. CLOPIN ECO [Suspect]
     Active Substance: CLOZAPINE
     Indication: SCHIZOPHRENIA
     Dosage: 100 MG, Q6H
     Route: 048
     Dates: start: 20170101
  2. TAMSULOSIN HYDROCHLORIDE. [Interacting]
     Active Substance: TAMSULOSIN HYDROCHLORIDE
     Indication: BENIGN PROSTATIC HYPERPLASIA
     Dosage: 0.4 MG, QD
     Route: 048
     Dates: end: 20191202
  3. TAMSULOSIN HYDROCHLORIDE. [Interacting]
     Active Substance: TAMSULOSIN HYDROCHLORIDE
     Dosage: 0.4 MG, QD
     Route: 048
     Dates: start: 201912
  4. ELTROXIN LF [Concomitant]
     Indication: HYPOTHYROIDISM
     Dosage: 0.05 MG, QD
     Route: 048
     Dates: end: 20191202
  5. NIFEDIPINE. [Interacting]
     Active Substance: NIFEDIPINE
     Indication: HYPERTENSION
     Dosage: 20 MG, QD
     Route: 048
     Dates: end: 20191202
  6. CALCIMAGON-D3 [Interacting]
     Active Substance: CALCIUM\CHOLECALCIFEROL
     Dosage: 2 DF, QD
     Route: 048
     Dates: start: 201912
  7. LISITRIL 10 [Interacting]
     Active Substance: LISINOPRIL
     Dosage: 10 MG, QD
     Route: 048
     Dates: start: 201912
  8. NIFEDIPINE. [Interacting]
     Active Substance: NIFEDIPINE
     Dosage: 20 MG, QD
     Route: 048
     Dates: start: 201912
  9. LISITRIL 10 [Interacting]
     Active Substance: LISINOPRIL
     Indication: HYPERTENSION
     Dosage: 10 MG, QD
     Route: 048
     Dates: end: 20191202
  10. CALCIMAGON-D3 [Interacting]
     Active Substance: CALCIUM\CHOLECALCIFEROL
     Indication: PRODUCT USED FOR UNKNOWN INDICATION
     Dosage: 2 DF, QD
     Route: 048
     Dates: end: 20191202
  11. FICUS CARICA;SENNA ALEXANDRINA;SENNOSIDE B [Concomitant]
     Indication: PRODUCT USED FOR UNKNOWN INDICATION
     Dosage: UNK
     Route: 048
     Dates: end: 20191202

REACTIONS (1)
  - Ileus paralytic [Recovered/Resolved]

NARRATIVE: CASE EVENT DATE: 20191202
